FAERS Safety Report 26162878 (Version 1)
Quarter: 2025Q4

REPORT INFORMATION
  Report Type: Spontaneous
  Country: CN (occurrence: CN)
  Receive Date: 20251216
  Receipt Date: 20251216
  Transmission Date: 20260118
  Serious: Yes (Other)
  Sender: PFIZER
  Company Number: CN-PFIZER INC-PV202500146529

PATIENT
  Age: 51 Year
  Sex: Female

DRUGS (1)
  1. CRIZOTINIB [Suspect]
     Active Substance: CRIZOTINIB
     Dosage: 250 MG
     Route: 048

REACTIONS (6)
  - Metastases to central nervous system [Unknown]
  - Amaurosis [Unknown]
  - Vision blurred [Unknown]
  - Vitreous floaters [Unknown]
  - Dizziness [Unknown]
  - Gait inability [Unknown]
